FAERS Safety Report 13183105 (Version 3)
Quarter: 2017Q1

REPORT INFORMATION
  Report Type: Spontaneous
  Country: JP (occurrence: JP)
  Receive Date: 20170203
  Receipt Date: 20170331
  Transmission Date: 20170428
  Serious: Yes (Other)
  Sender: FDA-Public Use
  Company Number: JP-PFIZER INC-2017032364

PATIENT
  Age: 83 Year
  Sex: Male
  Weight: 66.5 kg

DRUGS (8)
  1. LASIX [Concomitant]
     Active Substance: FUROSEMIDE
     Dosage: 20 MG, DAILY
  2. BAYASPIRIN [Concomitant]
     Active Substance: ASPIRIN
  3. ARTIST [Concomitant]
     Active Substance: CARVEDILOL
  4. POTASSIUM [Concomitant]
     Active Substance: POTASSIUM
  5. SUTENT [Suspect]
     Active Substance: SUNITINIB MALATE
     Dosage: 25 MG, DAILY
     Route: 048
     Dates: start: 20170307
  6. ZOVIRAX [Concomitant]
     Active Substance: ACYCLOVIR
  7. SUTENT [Suspect]
     Active Substance: SUNITINIB MALATE
     Dosage: 37.5 MG, DAILY
     Route: 048
     Dates: start: 20170107
  8. CONIEL [Concomitant]
     Active Substance: BENIDIPINE HYDROCHLORIDE
     Dosage: 4 MG, DAILY
     Route: 048

REACTIONS (12)
  - Ejection fraction decreased [Recovered/Resolved]
  - Fall [Unknown]
  - Ascites [Unknown]
  - White blood cell count decreased [Recovered/Resolved]
  - Anaemia [Recovered/Resolved]
  - Face injury [Unknown]
  - Abdominal pain upper [Not Recovered/Not Resolved]
  - Platelet count decreased [Recovered/Resolved]
  - Fatigue [Unknown]
  - Cardiac failure [Recovered/Resolved]
  - Blood pressure increased [Recovering/Resolving]
  - Blood lactate dehydrogenase decreased [Unknown]

NARRATIVE: CASE EVENT DATE: 20170119
